FAERS Safety Report 16477895 (Version 1)
Quarter: 2019Q2

REPORT INFORMATION
  Report Type: Spontaneous
  Country: US (occurrence: US)
  Receive Date: 20190626
  Receipt Date: 20190626
  Transmission Date: 20190711
  Serious: No
  Sender: FDA-Public Use
  Company Number: US-GILEAD-2019-0415293

PATIENT
  Age: 54 Year
  Sex: Male

DRUGS (10)
  1. JARDIANCE [Concomitant]
     Active Substance: EMPAGLIFLOZIN
     Dosage: UNKNOWN
  2. IRON 100 PLUS [Concomitant]
     Active Substance: ASCORBIC ACID\CYANOCOBALAMIN\FOLIC ACID\IRON
     Dosage: UNKNOWN
  3. FOLIC ACID. [Concomitant]
     Active Substance: FOLIC ACID
     Dosage: UNKNOWN
  4. LACTOSE [Concomitant]
     Active Substance: LACTOSE
     Dosage: UNKNOWN
  5. SPIRONOLACTONE. [Concomitant]
     Active Substance: SPIRONOLACTONE
     Dosage: UNKNOWN
  6. LANTUS [Concomitant]
     Active Substance: INSULIN GLARGINE
     Dosage: UNKNOWN
  7. LASIX [Concomitant]
     Active Substance: FUROSEMIDE
     Dosage: UNKNOWN
  8. TRADJENTA [Concomitant]
     Active Substance: LINAGLIPTIN
     Dosage: UNKNOWN
  9. HARVONI [Suspect]
     Active Substance: LEDIPASVIR\SOFOSBUVIR
     Indication: CHRONIC HEPATITIS C
     Dosage: 1 DOSAGE FORM, QD
     Route: 048
     Dates: start: 201905
  10. POTASSIUM SULFATE [Concomitant]
     Active Substance: POTASSIUM SULFATE
     Dosage: UNKNOWN

REACTIONS (1)
  - Intentional dose omission [Recovered/Resolved]

NARRATIVE: CASE EVENT DATE: 201906
